FAERS Safety Report 12866877 (Version 1)
Quarter: 2016Q4

REPORT INFORMATION
  Report Type: Spontaneous
  Country: SE (occurrence: SE)
  Receive Date: 20161020
  Receipt Date: 20161020
  Transmission Date: 20170207
  Serious: Yes (Hospitalization)
  Sender: FDA-Public Use
  Company Number: SE-TEVA-701582ROM

PATIENT
  Age: 76 Year
  Sex: Male

DRUGS (2)
  1. CIPROFLOXACIN. [Suspect]
     Active Substance: CIPROFLOXACIN
  2. ENALAPRIL [Suspect]
     Active Substance: ENALAPRIL

REACTIONS (3)
  - Chronic kidney disease [Unknown]
  - Dehydration [Unknown]
  - Hypotension [Unknown]
